FAERS Safety Report 13190575 (Version 1)
Quarter: 2017Q1

REPORT INFORMATION
  Report Type: Spontaneous
  Country: GB (occurrence: GB)
  Receive Date: 20170206
  Receipt Date: 20170206
  Transmission Date: 20170428
  Serious: Yes (Other)
  Sender: FDA-Public Use
  Company Number: PHHY2017GB012788

PATIENT
  Age: 27 Year
  Sex: Female
  Weight: 41.72 kg

DRUGS (2)
  1. IBUPROFEN BOOTS [Concomitant]
     Active Substance: IBUPROFEN
     Indication: PRODUCT USED FOR UNKNOWN INDICATION
     Route: 065
  2. AMOXICILLIN. [Suspect]
     Active Substance: AMOXICILLIN
     Indication: TOOTH INFECTION
     Route: 048
     Dates: start: 20170114, end: 20170116

REACTIONS (4)
  - Headache [Unknown]
  - Abnormal dreams [Recovered/Resolved with Sequelae]
  - Night sweats [Recovered/Resolved with Sequelae]
  - Palpitations [Recovered/Resolved with Sequelae]

NARRATIVE: CASE EVENT DATE: 20170114
